FAERS Safety Report 18540583 (Version 1)
Quarter: 2020Q4

REPORT INFORMATION
  Report Type: Spontaneous
  Country: FR (occurrence: FR)
  Receive Date: 20201124
  Receipt Date: 20201124
  Transmission Date: 20210114
  Serious: Yes (Other)
  Sender: FDA-Public Use
  Company Number: FR-TEVA-2020-FR-1851507

PATIENT
  Age: 88 Year
  Sex: Male
  Weight: 80 kg

DRUGS (14)
  1. XATRAL LP 10 MG, COMPRIME A LIBERATION PROLONGEE [Concomitant]
     Active Substance: ALFUZOSIN
  2. METFORMINE ARROW 500 MG, COMPRIME PELLICULE [Suspect]
     Active Substance: METFORMIN HYDROCHLORIDE
     Indication: DIABETES MELLITUS
     Dosage: 1000 MG
     Route: 048
     Dates: start: 20201020, end: 20201024
  3. PERINDOPRIL ARROW 2 MG COMPRIME [Suspect]
     Active Substance: PERINDOPRIL ERBUMINE
     Indication: HYPERTENSION
     Dosage: 2 MG
     Route: 048
     Dates: start: 20201020, end: 20201024
  4. SODIUM ALGINATE SODIUM BICARBONATE MYLAN [Concomitant]
     Active Substance: SODIUM ALGINATE\SODIUM BICARBONATE
  5. ISUPREL [Suspect]
     Active Substance: ISOPROTERENOL HYDROCHLORIDE
     Indication: ATRIOVENTRICULAR BLOCK
     Dosage: 1 DOSAGE FORMS
     Route: 042
     Dates: start: 20201023
  6. FUROSEMIDE ARROW 40 MG, COMPRIME SECABLE [Suspect]
     Active Substance: FUROSEMIDE
     Indication: HYPERTENSION
     Dosage: 40 MG
     Route: 048
     Dates: start: 20201020, end: 20201024
  7. DOLIPRANE [Concomitant]
     Active Substance: ACETAMINOPHEN
  8. ORBENINE [Suspect]
     Active Substance: CLOXACILLIN SODIUM
     Indication: INFECTION
     Dosage: 12 GRAM
     Route: 048
     Dates: start: 20201023, end: 20201026
  9. BISOCE 1,25 MG, COMPRIME PELLICULE [Suspect]
     Active Substance: BISOPROLOL FUMARATE
     Indication: HYPERTENSION
     Dosage: 2.5 MG
     Route: 048
     Dates: start: 20201020, end: 20201022
  10. ELIQUIS [Concomitant]
     Active Substance: APIXABAN
  11. DAPTOMYCINE MEDAC [Suspect]
     Active Substance: DAPTOMYCIN
     Indication: INFECTION
     Dosage: 770 MG
     Route: 042
     Dates: start: 20201020, end: 20201022
  12. CALCIPARINE [Concomitant]
     Active Substance: HEPARIN CALCIUM
  13. ATORVASTATINE ARROW 10 MG, COMPRIME PELLICULE [Concomitant]
     Active Substance: ATORVASTATIN
  14. LAMALINE [Concomitant]

REACTIONS (2)
  - Nephritis allergic [Recovering/Resolving]
  - Acute kidney injury [Recovering/Resolving]

NARRATIVE: CASE EVENT DATE: 20201024
